FAERS Safety Report 21816981 (Version 1)
Quarter: 2023Q1

REPORT INFORMATION
  Report Type: Spontaneous
  Country: RU (occurrence: RU)
  Receive Date: 20230104
  Receipt Date: 20230104
  Transmission Date: 20230417
  Serious: Yes (Other)
  Sender: FDA-Public Use
  Company Number: RU-JNJFOC-20221264463

PATIENT
  Age: 25 Year
  Sex: Male
  Weight: 55 kg

DRUGS (9)
  1. SIRTURO [Suspect]
     Active Substance: BEDAQUILINE FUMARATE
     Indication: Tuberculosis
     Dosage: 200
     Route: 048
     Dates: start: 20220607, end: 20220806
  2. SIRTURO [Suspect]
     Active Substance: BEDAQUILINE FUMARATE
     Dosage: 200
     Route: 048
     Dates: start: 202211, end: 20221224
  3. LINEZOLID [Suspect]
     Active Substance: LINEZOLID
     Indication: Tuberculosis
     Dosage: 600
     Route: 048
     Dates: start: 20220607, end: 20220806
  4. LINEZOLID [Suspect]
     Active Substance: LINEZOLID
     Dosage: 600
     Route: 048
     Dates: start: 202211, end: 20221224
  5. MOXIFLOXACIN [Suspect]
     Active Substance: MOXIFLOXACIN
     Indication: Tuberculosis
     Dosage: 400
     Route: 048
     Dates: start: 20220607, end: 20220806
  6. MOXIFLOXACIN [Suspect]
     Active Substance: MOXIFLOXACIN
     Dosage: 400
     Route: 048
     Dates: start: 202211, end: 20221224
  7. CYCLOSERINE [Suspect]
     Active Substance: CYCLOSERINE
     Indication: Tuberculosis
     Dosage: 750
     Route: 048
     Dates: start: 20220622, end: 20220726
  8. CLOFAZIMINE [Suspect]
     Active Substance: CLOFAZIMINE
     Indication: Tuberculosis
     Dosage: 100
     Route: 048
     Dates: start: 20220607, end: 20220806
  9. CLOFAZIMINE [Suspect]
     Active Substance: CLOFAZIMINE
     Dosage: 100
     Route: 048
     Dates: start: 202211, end: 20221224

REACTIONS (5)
  - Hepatitis C [Unknown]
  - Suicide attempt [Unknown]
  - Depression [Unknown]
  - Poor quality sleep [Unknown]
  - Influenza [Unknown]

NARRATIVE: CASE EVENT DATE: 20220701
